FAERS Safety Report 23148811 (Version 2)
Quarter: 2023Q4

REPORT INFORMATION
  Report Type: Spontaneous
  Country: TW (occurrence: TW)
  Receive Date: 20231106
  Receipt Date: 20231116
  Transmission Date: 20240109
  Serious: Yes (Death)
  Sender: FDA-Public Use
  Company Number: TW-DSJP-DSJ-2023-145405

PATIENT
  Age: 57 Year
  Sex: Female
  Weight: 41.5 kg

DRUGS (2)
  1. EDOXABAN [Suspect]
     Active Substance: EDOXABAN
     Indication: Deep vein thrombosis
     Dosage: 30 MG, QD
     Route: 065
     Dates: start: 202101, end: 202103
  2. FUROSEMIDE [Concomitant]
     Active Substance: FUROSEMIDE
     Indication: Product used for unknown indication
     Dosage: 40 MG, QD
     Route: 065

REACTIONS (3)
  - Cardiac arrest [Fatal]
  - Peripheral swelling [Unknown]
  - Haematemesis [Unknown]

NARRATIVE: CASE EVENT DATE: 20210215
